FAERS Safety Report 6241834-0 (Version None)
Quarter: 2009Q2

REPORT INFORMATION
  Report Type: 
  Country: None (occurrence: None)
  Receive Date: 20090623
  Receipt Date: 20090619
  Transmission Date: 20091009
  Serious: Yes (Other)
  Sender: FDA-Public Use
  Company Number: CH-WYE-G03886609

PATIENT
  Age: 79 Year
  Sex: Male

DRUGS (2)
  1. TORISEL [Suspect]
     Indication: RENAL CELL CARCINOMA
     Dates: start: 20090605, end: 20090605
  2. TORISEL [Suspect]
     Dates: start: 20090610, end: 20090610

REACTIONS (3)
  - CEREBRAL ISCHAEMIA [None]
  - GAIT DISTURBANCE [None]
  - THROMBOCYTOPENIA [None]
